FAERS Safety Report 7759788-4 (Version None)
Quarter: 2011Q3

REPORT INFORMATION
  Report Type: 
  Country: None (occurrence: None)
  Receive Date: 20110919
  Receipt Date: 20110914
  Transmission Date: 20111222
  Serious: Yes (Hospitalization)
  Sender: FDA-Public Use
  Company Number: DE-AMGEN-DEUSP2011040174

PATIENT
  Age: 61 Year
  Sex: Female
  Weight: 65 kg

DRUGS (3)
  1. CYTARABINE [Suspect]
     Indication: ACUTE MYELOID LEUKAEMIA
     Dosage: 1 MG/M2, BID
     Dates: start: 20110527, end: 20110529
  2. NEULASTA [Suspect]
     Indication: ACUTE MYELOID LEUKAEMIA
     Dosage: 6 MG, ONE TIME DOSE
     Dates: start: 20110601, end: 20110601
  3. TRETINOIN [Suspect]
     Indication: ACUTE MYELOID LEUKAEMIA
     Dosage: 30 MG, UNK
     Dates: start: 20110530, end: 20110616

REACTIONS (2)
  - INFECTION [None]
  - FATIGUE [None]
